FAERS Safety Report 25764628 (Version 1)
Quarter: 2025Q3

REPORT INFORMATION
  Report Type: Spontaneous
  Country: US (occurrence: US)
  Receive Date: 20250905
  Receipt Date: 20250905
  Transmission Date: 20251020
  Serious: No
  Sender: DOMPE FARMACEUTICI
  Company Number: US-FARMAPROD-202502-0376

PATIENT
  Sex: Female

DRUGS (28)
  1. OXERVATE [Suspect]
     Active Substance: CENEGERMIN-BKBJ
     Indication: Neurotrophic keratopathy
     Route: 047
     Dates: start: 20250113
  2. OXERVATE [Suspect]
     Active Substance: CENEGERMIN-BKBJ
  3. ERYTHROMYCIN [Concomitant]
     Active Substance: ERYTHROMYCIN
  4. PENICILLIN V POTASSIUM [Concomitant]
     Active Substance: PENICILLIN V POTASSIUM
  5. NALBUPHINE [Concomitant]
     Active Substance: NALBUPHINE
  6. IODINE TINCTURE [IODINE] [Concomitant]
  7. SULFAMETHOXAZOLE AND TRIMETHOPRIM [Concomitant]
     Active Substance: SULFAMETHOXAZOLE\TRIMETHOPRIM
  8. DOXYCYCLINE [Concomitant]
     Active Substance: DOXYCYCLINE
  9. MORPHINE SULFATE [Concomitant]
     Active Substance: MORPHINE SULFATE
  10. PREGABALIN [Concomitant]
     Active Substance: PREGABALIN
  11. CLARITHROMYCIN [Concomitant]
     Active Substance: CLARITHROMYCIN
  12. PLAQUENIL [Concomitant]
     Active Substance: HYDROXYCHLOROQUINE SULFATE
  13. ASPIRIN [Concomitant]
     Active Substance: ASPIRIN
  14. OMEPRAZOLE [Concomitant]
     Active Substance: OMEPRAZOLE
  15. CELECOXIB [Concomitant]
     Active Substance: CELECOXIB
  16. GABAPENTIN [Concomitant]
     Active Substance: GABAPENTIN
  17. UNSPECIFIED INGREDIENT [Concomitant]
     Active Substance: UNSPECIFIED INGREDIENT
  18. LANSOPRAZOLE [Concomitant]
     Active Substance: LANSOPRAZOLE
  19. CYCLOBENZAPRINE HYDROCHLORIDE [Concomitant]
     Active Substance: CYCLOBENZAPRINE HYDROCHLORIDE
  20. KETOROLAC TROMETHAMINE [Concomitant]
     Active Substance: KETOROLAC TROMETHAMINE
  21. ESOMEPRAZOLE MAGNESIUM [Concomitant]
     Active Substance: ESOMEPRAZOLE MAGNESIUM
  22. DEXAMETHASONE [Concomitant]
     Active Substance: DEXAMETHASONE
  23. NITROFURANTOIN [Concomitant]
     Active Substance: NITROFURANTOIN
  24. SULFASALAZINE [Concomitant]
     Active Substance: SULFASALAZINE
  25. TRAMADOL HCL [Concomitant]
     Active Substance: TRAMADOL HYDROCHLORIDE
  26. PAROXETINE HYDROCHLORIDE [Concomitant]
     Active Substance: PAROXETINE HYDROCHLORIDE
  27. SORGHUM HALEPENSE [Concomitant]
  28. PERIPLANETA AMERICANA [Concomitant]
     Active Substance: PERIPLANETA AMERICANA

REACTIONS (8)
  - Pain [Unknown]
  - Headache [Not Recovered/Not Resolved]
  - Migraine [Unknown]
  - Photophobia [Unknown]
  - Product dose omission issue [Unknown]
  - Rhinorrhoea [Unknown]
  - Eye discharge [Unknown]
  - Eye pain [Recovered/Resolved]
